FAERS Safety Report 5052843-1 (Version None)
Quarter: 2006Q2

REPORT INFORMATION
  Report Type: 
  Country: None (occurrence: None)
  Receive Date: 20060629
  Receipt Date: 20060616
  Transmission Date: 20061013
  Serious: Yes (Life-Threatening)
  Sender: FDA-Public Use
  Company Number: THYM-10977

PATIENT
  Age: 48 Year
  Sex: Male
  Weight: 65.7 kg

DRUGS (3)
  1. THYMOGLOBULIN [Suspect]
     Indication: RENAL TRANSPLANT
     Dosage: 100 MG ONCE IV
     Route: 042
     Dates: start: 20060406, end: 20060406
  2. CELLCEPT [Concomitant]
  3. NEORAL [Concomitant]

REACTIONS (2)
  - ACUTE PULMONARY OEDEMA [None]
  - HYPOTENSION [None]
